FAERS Safety Report 9398893 (Version 1)
Quarter: 2013Q3

REPORT INFORMATION
  Report Type: Spontaneous
  Country: US (occurrence: US)
  Receive Date: 20130712
  Receipt Date: 20130712
  Transmission Date: 20140515
  Serious: Yes (Hospitalization)
  Sender: FDA-Public Use
  Company Number: US-B.I. PHARMACEUTICALS,INC./RIDGEFIELD-2013-BI-20219BP

PATIENT
  Age: 68 Year
  Sex: Female
  Weight: 52 kg

DRUGS (1)
  1. COMBIVENT [Suspect]
     Indication: CHRONIC OBSTRUCTIVE PULMONARY DISEASE
     Dosage: STRENGTH: 18 MCG / 103 MCG; DAILY DOSE: 144 MCG / 824 MCG
     Route: 055
     Dates: start: 1996

REACTIONS (4)
  - Fall [Recovered/Resolved]
  - Hip fracture [Recovered/Resolved]
  - Head injury [Recovered/Resolved]
  - Amnesia [Not Recovered/Not Resolved]
